FAERS Safety Report 15658678 (Version 5)
Quarter: 2019Q2

REPORT INFORMATION
  Report Type: Spontaneous
  Country: AU (occurrence: AU)
  Receive Date: 20181126
  Receipt Date: 20190526
  Transmission Date: 20190711
  Serious: Yes (Hospitalization)
  Sender: FDA-Public Use
  Company Number: AU-AMGEN-AUSSP2018168962

PATIENT
  Age: 59 Year
  Sex: Female

DRUGS (1)
  1. ENBREL [Suspect]
     Active Substance: ETANERCEPT
     Indication: RHEUMATOID ARTHRITIS
     Dosage: 50 MILLIGRAM, QWK
     Route: 058
     Dates: start: 20180809, end: 20180906

REACTIONS (5)
  - Injection site erosion [Unknown]
  - Malaise [Unknown]
  - Device issue [Unknown]
  - Localised infection [Unknown]
  - Stress fracture [Unknown]

NARRATIVE: CASE EVENT DATE: 20181123
